FAERS Safety Report 8114662-9 (Version None)
Quarter: 2012Q1

REPORT INFORMATION
  Report Type: 
  Country: None (occurrence: None)
  Receive Date: 20120206
  Receipt Date: 20120131
  Transmission Date: 20120608
  Serious: Yes (Hospitalization)
  Sender: FDA-Public Use
  Company Number: JP-PFIZER INC-2012012140

PATIENT
  Age: 66 Year
  Sex: Male

DRUGS (7)
  1. CANDESARTAN CILEXETIL AND HYDROCHLOROTHIAZIDE [Suspect]
     Dosage: UNK
     Route: 048
  2. CEREKINON [Concomitant]
     Dosage: UNK
     Route: 048
  3. RELPAX [Suspect]
     Indication: HEADACHE
     Dosage: 20 MG/DAY
     Route: 048
     Dates: start: 20110901, end: 20111201
  4. FAMOTIDINE [Suspect]
     Dosage: UNK
     Route: 048
  5. GASMOTIN [Concomitant]
     Dosage: UNK
     Route: 048
  6. RELPAX [Suspect]
     Indication: TINNITUS
  7. KERLONE [Concomitant]
     Dosage: UNK
     Route: 048

REACTIONS (1)
  - VASCULAR STENOSIS [None]
